FAERS Safety Report 15066789 (Version 1)
Quarter: 2018Q2

REPORT INFORMATION
  Report Type: Spontaneous
  Country: JP (occurrence: JP)
  Receive Date: 20180626
  Receipt Date: 20180626
  Transmission Date: 20180711
  Serious: Yes (Hospitalization)
  Sender: FDA-Public Use
  Company Number: JP-PFIZER INC-2018251237

PATIENT
  Age: 23 Year
  Sex: Female

DRUGS (4)
  1. VALPROIC ACID. [Suspect]
     Active Substance: VALPROIC ACID
  2. QUETIAPINE FUMARATE. [Suspect]
     Active Substance: QUETIAPINE FUMARATE
  3. SERTRALINE HCL [Suspect]
     Active Substance: SERTRALINE HYDROCHLORIDE
  4. RISPERIDONE. [Suspect]
     Active Substance: RISPERIDONE
     Dosage: 30 ML, UNK
     Route: 048

REACTIONS (7)
  - Toxicity to various agents [Recovering/Resolving]
  - Blood creatine phosphokinase increased [Unknown]
  - Altered state of consciousness [Unknown]
  - Overdose [Unknown]
  - Procalcitonin increased [Recovering/Resolving]
  - Respiratory failure [Unknown]
  - Circulatory collapse [Unknown]
